FAERS Safety Report 8992262 (Version 3)
Quarter: 2013Q2

REPORT INFORMATION
  Report Type: Spontaneous
  Country: TW (occurrence: TW)
  Receive Date: 20121231
  Receipt Date: 20130502
  Transmission Date: 20140414
  Serious: Yes (Hospitalization)
  Sender: FDA-Public Use
  Company Number: TW-ABBOTT-12P-153-1027512-00

PATIENT
  Age: 30 Year
  Sex: Male
  Weight: 42 kg

DRUGS (2)
  1. HUMIRA [Suspect]
     Indication: CROHN^S DISEASE
     Route: 058
     Dates: start: 20110921
  2. HUMIRA [Suspect]
     Dates: start: 20121117

REACTIONS (3)
  - Colostomy [Recovering/Resolving]
  - Gastrointestinal oedema [Recovered/Resolved]
  - Post procedural constipation [Recovered/Resolved]
